FAERS Safety Report 7518244-9 (Version None)
Quarter: 2011Q2

REPORT INFORMATION
  Report Type: 
  Country: None (occurrence: None)
  Receive Date: 20110601
  Receipt Date: 20110601
  Transmission Date: 20111010
  Serious: Yes (Hospitalization)
  Sender: FDA-Public Use
  Company Number: None

PATIENT
  Age: 64 Year
  Sex: Female
  Weight: 87.0906 kg

DRUGS (1)
  1. IV PREP WIPES SMITH + NEPHEW [Suspect]
     Dosage: CHANGE EVERY 2 DAYS

REACTIONS (5)
  - ASTHENIA [None]
  - PYREXIA [None]
  - PRODUCT CONTAMINATION [None]
  - INFLUENZA LIKE ILLNESS [None]
  - PAIN [None]
